FAERS Safety Report 15470525 (Version 1)
Quarter: 2018Q4

REPORT INFORMATION
  Report Type: Report from Study
  Country: US (occurrence: US)
  Receive Date: 20181005
  Receipt Date: 20181005
  Transmission Date: 20190205
  Serious: Yes (Hospitalization, Other)
  Sender: FDA-Public Use
  Company Number: US-SHIRE-US201837299

PATIENT
  Age: 9 Year
  Sex: Male

DRUGS (1)
  1. ADVATE [Suspect]
     Active Substance: ANTIHEMOPHILIC FACTOR, HUMAN RECOMBINANT
     Indication: PRODUCT USED FOR UNKNOWN INDICATION
     Dosage: UNK, 3X A WEEK
     Route: 050

REACTIONS (6)
  - Vein rupture [Unknown]
  - Vascular device infection [Unknown]
  - Spontaneous haemorrhage [Unknown]
  - Scar [Unknown]
  - Seizure [Unknown]
  - Contusion [Unknown]
